FAERS Safety Report 15790630 (Version 2)
Quarter: 2019Q1

REPORT INFORMATION
  Report Type: Report from Study
  Country: None (occurrence: JP)
  Receive Date: 20190104
  Receipt Date: 20190114
  Transmission Date: 20190417
  Serious: No
  Sender: FDA-Public Use
  Company Number: JP-ABBVIE-18P-087-2605943-00

PATIENT
  Age: 81 Year
  Sex: Female
  Weight: 61.7 kg

DRUGS (34)
  1. MAGNESIUM OXIDE. [Concomitant]
     Active Substance: MAGNESIUM OXIDE
     Indication: CONSTIPATION
     Route: 048
     Dates: start: 20180509
  2. NEW LECICARBON [Concomitant]
     Active Substance: SODIUM BICARBONATE\SODIUM PHOSPHATE, MONOBASIC
     Indication: CONSTIPATION
     Dosage: 1 PIECE
     Route: 061
     Dates: start: 20180512
  3. KETOPROFEN. [Concomitant]
     Active Substance: KETOPROFEN
     Route: 061
     Dates: start: 20181007
  4. HYALEIN [Concomitant]
     Active Substance: HYALURONATE SODIUM
     Indication: DRY EYE
     Route: 031
     Dates: start: 20181006
  5. HIRUDOID [Concomitant]
     Active Substance: GLYCOSAMINOGLYCANS
     Route: 061
     Dates: start: 20180618, end: 20180628
  6. CAPSAICIN DL-CAMPHOR METHYL SALICYLATE [Concomitant]
     Indication: ARTHRITIS
     Route: 061
     Dates: start: 20181205
  7. LEVOFLOXACIN. [Concomitant]
     Active Substance: LEVOFLOXACIN
     Indication: INFECTION PROPHYLAXIS
     Route: 048
     Dates: start: 20181225
  8. DERMOVATE [Concomitant]
     Active Substance: CLOBETASOL
     Route: 061
     Dates: start: 20180618, end: 20180628
  9. AZUNOL GARGLE LIQUID [Concomitant]
     Indication: INFECTION PROPHYLAXIS
     Route: 061
     Dates: start: 20181012
  10. LEVOFLOXACIN. [Concomitant]
     Active Substance: LEVOFLOXACIN
     Route: 048
     Dates: start: 20181116, end: 20181214
  11. VENETOCLAX. [Suspect]
     Active Substance: VENETOCLAX
     Dosage: CYCLE=28 DAYS
     Route: 048
     Dates: start: 20180504, end: 20180504
  12. VENETOCLAX. [Suspect]
     Active Substance: VENETOCLAX
     Dosage: CYCLE=28 DAYS
     Route: 048
     Dates: start: 20180505, end: 20180903
  13. DERMOVATE [Concomitant]
     Active Substance: CLOBETASOL
     Route: 061
     Dates: start: 20181004
  14. LEVOFLOXACIN. [Concomitant]
     Active Substance: LEVOFLOXACIN
     Route: 048
     Dates: start: 20181225
  15. VENETOCLAX. [Suspect]
     Active Substance: VENETOCLAX
     Dosage: CYCLE=28 DAYS
     Route: 048
     Dates: start: 20180917
  16. AMITIZA [Concomitant]
     Active Substance: LUBIPROSTONE
     Indication: CONSTIPATION
     Route: 048
     Dates: start: 20180710
  17. KETOPROFEN. [Concomitant]
     Active Substance: KETOPROFEN
     Indication: MUSCULOSKELETAL PAIN
     Route: 061
     Dates: start: 20180712
  18. TALION [Concomitant]
     Indication: ECZEMA ASTEATOTIC
     Route: 048
     Dates: start: 20180511
  19. TALION [Concomitant]
     Indication: PROPHYLAXIS
  20. KETOPROFEN. [Concomitant]
     Active Substance: KETOPROFEN
     Indication: BACK PAIN
     Route: 061
     Dates: start: 20180712
  21. FEBUXOSTAT. [Concomitant]
     Active Substance: FEBUXOSTAT
     Indication: PROPHYLAXIS
     Route: 048
     Dates: start: 20180502, end: 20180510
  22. VENETOCLAX. [Suspect]
     Active Substance: VENETOCLAX
     Indication: ACUTE MYELOID LEUKAEMIA
     Dosage: CYCLE=28 DAYS
     Route: 048
     Dates: start: 20180503, end: 20180503
  23. GLICOL SALICYLATE [Concomitant]
     Indication: MUSCULOSKELETAL PAIN
     Route: 061
     Dates: start: 20180607
  24. HIRUDOID [Concomitant]
     Active Substance: GLYCOSAMINOGLYCANS
     Indication: ECZEMA ASTEATOTIC
     Route: 061
     Dates: start: 20180512, end: 20180606
  25. HIRUDOID [Concomitant]
     Active Substance: GLYCOSAMINOGLYCANS
     Route: 061
     Dates: start: 20181004
  26. VENETOCLAX. [Suspect]
     Active Substance: VENETOCLAX
     Dosage: CYCLE=28 DAYS
     Route: 048
     Dates: start: 20180914, end: 20180916
  27. AZACITIDINE. [Suspect]
     Active Substance: AZACITIDINE
     Indication: ACUTE MYELOID LEUKAEMIA
     Dosage: DAYS 1-7 OF 28 DAY CYCLE
     Route: 058
     Dates: start: 20180503
  28. LEVOFLOXACIN. [Concomitant]
     Active Substance: LEVOFLOXACIN
     Route: 048
     Dates: start: 20180529, end: 20180614
  29. DERMOVATE [Concomitant]
     Active Substance: CLOBETASOL
     Indication: ECZEMA ASTEATOTIC
     Route: 061
     Dates: start: 20180515, end: 20180606
  30. YD SOLITA-NO.1 [Concomitant]
     Indication: PROPHYLAXIS
     Route: 042
     Dates: start: 20180502, end: 20180509
  31. SENNOSIDE [Concomitant]
     Active Substance: SENNOSIDES
     Indication: CONSTIPATION
     Route: 048
     Dates: start: 20180506
  32. ZOLPIDEM [Concomitant]
     Active Substance: ZOLPIDEM\ZOLPIDEM TARTRATE
     Indication: INSOMNIA
     Route: 048
     Dates: start: 20180522
  33. LEVOFLOXACIN. [Concomitant]
     Active Substance: LEVOFLOXACIN
     Indication: INFECTION PROPHYLAXIS
     Route: 048
     Dates: start: 20180426, end: 20180523
  34. LEVOFLOXACIN. [Concomitant]
     Active Substance: LEVOFLOXACIN
     Route: 048
     Dates: start: 20180830, end: 20180910

REACTIONS (1)
  - Thrombocytopenia [Not Recovered/Not Resolved]

NARRATIVE: CASE EVENT DATE: 20181227
